FAERS Safety Report 14657607 (Version 3)
Quarter: 2018Q2

REPORT INFORMATION
  Report Type: Spontaneous
  Country: FR (occurrence: FR)
  Receive Date: 20180320
  Receipt Date: 20180501
  Transmission Date: 20180711
  Serious: Yes (Other)
  Sender: FDA-Public Use
  Company Number: PHHY2018FR047103

PATIENT
  Age: 63 Year
  Sex: Male
  Weight: 108 kg

DRUGS (9)
  1. METFORMINE [Suspect]
     Active Substance: METFORMIN HYDROCHLORIDE
     Indication: DIABETES MELLITUS
     Dosage: UNK
     Route: 065
  2. INSULIN [Suspect]
     Active Substance: INSULIN NOS
     Indication: PITUITARY TUMOUR BENIGN
  3. CLOPIDOGREL [Suspect]
     Active Substance: CLOPIDOGREL BISULFATE
     Indication: MACROANGIOPATHY
     Dosage: UNK
     Route: 065
  4. INSULIN [Suspect]
     Active Substance: INSULIN NOS
     Indication: DIABETES MELLITUS
     Dosage: 55 U, BID
     Route: 065
  5. CABERGOLINE. [Concomitant]
     Active Substance: CABERGOLINE
     Indication: PITUITARY TUMOUR BENIGN
     Dosage: 120 MG, UNK
     Route: 065
  6. NOVOMIX [Suspect]
     Active Substance: INSULIN ASPART
     Indication: DIABETES MELLITUS
     Route: 065
  7. ATORVASTATINE [Suspect]
     Active Substance: ATORVASTATIN
     Indication: MACROANGIOPATHY
     Dosage: UNK
     Route: 065
  8. CABERGOLINE. [Concomitant]
     Active Substance: CABERGOLINE
     Indication: DIABETES MELLITUS
     Dosage: UNK
     Route: 065
  9. LANREOTIDE [Concomitant]
     Active Substance: LANREOTIDE
     Indication: PITUITARY TUMOUR BENIGN
     Dosage: 120 MG, UNK
     Route: 065

REACTIONS (1)
  - Vitreous haemorrhage [Unknown]

NARRATIVE: CASE EVENT DATE: 20160101
